FAERS Safety Report 8094125-X (Version None)
Quarter: 2012Q1

REPORT INFORMATION
  Report Type: 
  Country: None (occurrence: None)
  Receive Date: 20120130
  Receipt Date: 20120130
  Transmission Date: 20120608
  Serious: Yes (Hospitalization)
  Sender: FDA-Public Use
  Company Number: None

PATIENT
  Age: 72 Year
  Sex: Female
  Weight: 55.791 kg

DRUGS (2)
  1. RAD001,-EVEROLIMUS, AFFINITOR- [Suspect]
     Indication: ENDOMETRIAL CANCER
     Dosage: 10MG
     Route: 048
     Dates: start: 20101002, end: 20120122
  2. LETROZOLE [Concomitant]
     Indication: ENDOMETRIAL CANCER
     Dosage: 2.5MG
     Route: 048
     Dates: start: 20101002, end: 20120122

REACTIONS (2)
  - NEOPLASM PROGRESSION [None]
  - ABDOMINAL ABSCESS [None]
